FAERS Safety Report 8174949-0 (Version None)
Quarter: 2012Q1

REPORT INFORMATION
  Report Type: 
  Country: None (occurrence: None)
  Receive Date: 20120229
  Receipt Date: 20111028
  Transmission Date: 20120608
  Serious: No
  Sender: FDA-Public Use
  Company Number: US-GLAXOSMITHKLINE-A0951447A

PATIENT
  Age: 67 Year
  Sex: Female

DRUGS (2)
  1. KLONOPIN [Concomitant]
     Dosage: .5MG AT NIGHT
  2. VALTREX [Suspect]
     Indication: HERPES VIRUS INFECTION
     Dosage: 500MG UNKNOWN
     Route: 048
     Dates: start: 19960101

REACTIONS (3)
  - REACTION TO DRUG EXCIPIENTS [None]
  - DIARRHOEA [None]
  - EXPIRED DRUG ADMINISTERED [None]
